FAERS Safety Report 7646723-2 (Version None)
Quarter: 2011Q3

REPORT INFORMATION
  Report Type: 
  Country: None (occurrence: None)
  Receive Date: 20110729
  Receipt Date: 20110729
  Transmission Date: 20111222
  Serious: Yes (Other)
  Sender: FDA-Public Use
  Company Number: None

PATIENT
  Sex: Male
  Weight: 103.4201 kg

DRUGS (2)
  1. SIMVASTATIN [Suspect]
     Indication: BLOOD TRIGLYCERIDES INCREASED
     Dosage: 80 MG 2-6 MONTH
  2. SIMVASTATIN [Suspect]
     Indication: BLOOD CHOLESTEROL INCREASED
     Dosage: 80 MG 2-6 MONTH

REACTIONS (6)
  - AMNESIA [None]
  - VOMITING [None]
  - MUSCULAR WEAKNESS [None]
  - MYALGIA [None]
  - MUSCLE SPASMS [None]
  - INCORRECT DOSE ADMINISTERED [None]
